FAERS Safety Report 10761782 (Version 3)
Quarter: 2015Q1

REPORT INFORMATION
  Report Type: Report from Study
  Country: ES (occurrence: ES)
  Receive Date: 20150204
  Receipt Date: 20150212
  Transmission Date: 20150721
  Serious: Yes (Hospitalization)
  Sender: FDA-Public Use
  Company Number: ES-SA-2015SA012473

PATIENT
  Age: 82 Year
  Sex: Male

DRUGS (9)
  1. LANTUS SOLOSTAR [Suspect]
     Active Substance: INSULIN GLARGINE
     Indication: TYPE 2 DIABETES MELLITUS
     Route: 058
     Dates: start: 201405
  2. LANTUS SOLOSTAR [Suspect]
     Active Substance: INSULIN GLARGINE
     Indication: TYPE 2 DIABETES MELLITUS
     Route: 058
  3. APIDRA SOLOSTAR [Suspect]
     Active Substance: INSULIN GLULISINE
     Indication: TYPE 2 DIABETES MELLITUS
     Dosage: DOSE: 5 IU IF GLYCAEMIA PRE-PRANDIAL BREAKFAST MORE THAN 200
     Route: 058
     Dates: start: 201501
  4. APIDRA SOLOSTAR [Suspect]
     Active Substance: INSULIN GLULISINE
     Indication: TYPE 2 DIABETES MELLITUS
     Dosage: DOSE: 5 IU IF GLYCAEMIA PRE-PRANDIAL BREAKFAST MORE THAN 200
     Route: 058
  5. SOLOSTAR [Concomitant]
     Active Substance: DEVICE
     Dates: start: 201405
  6. LANTUS SOLOSTAR [Suspect]
     Active Substance: INSULIN GLARGINE
     Indication: TYPE 2 DIABETES MELLITUS
     Route: 058
  7. APIDRA SOLOSTAR [Suspect]
     Active Substance: INSULIN GLULISINE
     Indication: TYPE 2 DIABETES MELLITUS
     Dosage: DOSE: 5 IU IF GLYCAEMIA PRE-PRANDIAL BREAKFAST MORE THAN 200
     Route: 058
     Dates: start: 201405, end: 201501
  8. APIDRA SOLOSTAR [Suspect]
     Active Substance: INSULIN GLULISINE
     Indication: TYPE 2 DIABETES MELLITUS
     Dosage: DOSE: 5 IU IF GLYCAEMIA PRE-PRANDIAL BREAKFAST MORE THAN 200
     Route: 058
  9. SOLOSTAR [Concomitant]
     Active Substance: DEVICE
     Dates: start: 201405

REACTIONS (4)
  - Hyperglycaemia [Recovering/Resolving]
  - Respiratory tract infection [Unknown]
  - Hyperhidrosis [Not Recovered/Not Resolved]
  - Drug dose omission [Unknown]

NARRATIVE: CASE EVENT DATE: 20150128
